FAERS Safety Report 7419696-5 (Version None)
Quarter: 2011Q1

REPORT INFORMATION
  Report Type: 
  Country: None (occurrence: None)
  Receive Date: 20110302
  Receipt Date: 20101206
  Transmission Date: 20110831
  Serious: No
  Sender: FDA-Public Use
  Company Number: 023316

PATIENT
  Sex: Female

DRUGS (1)
  1. CIMZIA [Suspect]
     Dosage: (200 MG 1X/2 WEEKS, PFS SUBCUTANEOUS)
     Route: 058

REACTIONS (1)
  - BRONCHITIS [None]
